FAERS Safety Report 4925653-0 (Version None)
Quarter: 2006Q1

REPORT INFORMATION
  Report Type: 
  Country: None (occurrence: None)
  Receive Date: 20060228
  Receipt Date: 20050117
  Transmission Date: 20060701
  Serious: No
  Sender: FDA-Public Use
  Company Number: US-GLAXOSMITHKLINE-A0540948A

PATIENT
  Age: 64 Year
  Sex: Female

DRUGS (8)
  1. LAMICTAL [Suspect]
     Indication: BIPOLAR DISORDER
     Dosage: 100MG PER DAY
     Route: 048
     Dates: start: 20040801, end: 20050106
  2. FOSAMAX [Suspect]
  3. CLONAZEPAM [Concomitant]
  4. PAXIL [Concomitant]
  5. MULTI-VITAMIN [Concomitant]
  6. PREVACID [Concomitant]
  7. ROBITUSSIN [Concomitant]
  8. VITAMIN D [Concomitant]

REACTIONS (4)
  - DYSPHONIA [None]
  - RASH [None]
  - RASH PAPULAR [None]
  - RASH PRURITIC [None]
